FAERS Safety Report 8968015 (Version 3)
Quarter: 2013Q1

REPORT INFORMATION
  Report Type: Report from Study
  Country: DE (occurrence: DE)
  Receive Date: 20121218
  Receipt Date: 20130305
  Transmission Date: 20140127
  Serious: Yes (Hospitalization, Other)
  Sender: FDA-Public Use
  Company Number: DE-BRISTOL-MYERS SQUIBB COMPANY-15475866

PATIENT
  Age: 61 Year
  Sex: Male
  Weight: 60.6 kg

DRUGS (6)
  1. CISPLATIN [Suspect]
     Indication: NON-SMALL CELL LUNG CANCER
     Dosage: LAST DOSE:1DEC10 (DOSE3)?REG1-18OCT10-29DEC10-73D?REG2-29DEC10-UNK
     Route: 042
     Dates: start: 20101018
  2. GEMCITABINE HCL [Suspect]
     Indication: NON-SMALL CELL LUNG CANCER
     Dosage: VIAL;LAST DOSE:1DEC10 (DOSE5), RECED 8DEC10?DOSE RED 1585MG-29DEC10-REG2
     Route: 042
     Dates: start: 20101018
  3. NECITUMUMAB [Suspect]
     Indication: NON-SMALL CELL LUNG CANCER
     Dosage: LIQUID; LAST DOSE:1DEC10?ON 29DEC10, DOSE RED 600MG/KG
     Route: 042
     Dates: start: 20101018
  4. DELIX [Concomitant]
     Dates: start: 20101014
  5. RAMIPRIL [Concomitant]
     Dates: start: 20101004
  6. FORMOTEROL [Concomitant]
     Dates: start: 201009

REACTIONS (3)
  - Atrial fibrillation [Recovered/Resolved]
  - Diarrhoea [Recovered/Resolved]
  - Dehydration [Recovered/Resolved]
